FAERS Safety Report 6728092-5 (Version None)
Quarter: 2010Q2

REPORT INFORMATION
  Report Type: 
  Country: None (occurrence: None)
  Receive Date: 20100517
  Receipt Date: 20100512
  Transmission Date: 20101027
  Serious: No
  Sender: FDA-Public Use
  Company Number: DE-RB-007242-10

PATIENT
  Age: 19 Year
  Sex: Male

DRUGS (2)
  1. SUBUTEX [Suspect]
     Indication: DRUG USE FOR UNKNOWN INDICATION
     Dosage: DOSING DETAILS UNKNOWN
     Route: 065
  2. MIRTAZAPINE [Concomitant]
     Indication: DEPRESSION
     Dosage: 30 MG ONCE
     Route: 065

REACTIONS (2)
  - DRUG DIVERSION [None]
  - SUBSTANCE ABUSE [None]
